FAERS Safety Report 5906571-8 (Version None)
Quarter: 2008Q4

REPORT INFORMATION
  Report Type: 
  Country: None (occurrence: None)
  Receive Date: 20081002
  Receipt Date: 20080929
  Transmission Date: 20090506
  Serious: Yes (Death, Hospitalization)
  Sender: FDA-Public Use
  Company Number: BR-B.I. PHARMACEUTICALS,INC./RIDGEFIELD-2008-BR-00091BR

PATIENT
  Sex: Male

DRUGS (1)
  1. SIFROL [Suspect]
     Route: 048
     Dates: start: 20071101, end: 20071101

REACTIONS (4)
  - ASTHENIA [None]
  - DEVELOPMENTAL DELAY [None]
  - MUSCLE RIGIDITY [None]
  - OVERDOSE [None]
